FAERS Safety Report 20447529 (Version 1)
Quarter: 2022Q1

REPORT INFORMATION
  Report Type: Report from Study
  Country: US (occurrence: US)
  Receive Date: 20220209
  Receipt Date: 20220209
  Transmission Date: 20220423
  Serious: No
  Sender: FDA-Public Use
  Company Number: US-HRARD-2021000315

PATIENT
  Sex: Female

DRUGS (7)
  1. LYSODREN [Suspect]
     Active Substance: MITOTANE
     Dosage: 02 TAB DAILY FOR 07 DAYS, INCREASE WITH 02 ADD TAB EVERY WEEK, UNTIL 10 TAB DAILY AS OF 11MAY2021.
     Route: 048
     Dates: start: 20210224
  2. LYSODREN [Suspect]
     Active Substance: MITOTANE
     Dosage: UP TITRATED TO 15 TABLETS DAILY SINCE OCT 2021
     Route: 048
     Dates: start: 202110
  3. Burpropn HCL [Concomitant]
  4. CLINDAMYCIN [Concomitant]
     Active Substance: CLINDAMYCIN
  5. FINASTERIDE [Concomitant]
     Active Substance: FINASTERIDE
  6. ROSUVASTATIN [Concomitant]
     Active Substance: ROSUVASTATIN
  7. VIIBRYD [Concomitant]
     Active Substance: VILAZODONE HYDROCHLORIDE

REACTIONS (11)
  - Back pain [Unknown]
  - Neuralgia [Unknown]
  - Depression [Not Recovered/Not Resolved]
  - Muscular weakness [Unknown]
  - Abdominal pain upper [Unknown]
  - Fatigue [Not Recovered/Not Resolved]
  - Asthenia [Unknown]
  - Pain [Unknown]
  - Diarrhoea [Not Recovered/Not Resolved]
  - Dizziness [Not Recovered/Not Resolved]
  - Nausea [Not Recovered/Not Resolved]

NARRATIVE: CASE EVENT DATE: 20210101
